FAERS Safety Report 7906873-X (Version None)
Quarter: 2011Q4

REPORT INFORMATION
  Report Type: 
  Country: None (occurrence: None)
  Receive Date: 20111110
  Receipt Date: 20111028
  Transmission Date: 20120403
  Serious: Yes (Hospitalization, Other)
  Sender: FDA-Public Use
  Company Number: IE-ELI_LILLY_AND_COMPANY-IE201108001113

PATIENT
  Sex: Female

DRUGS (7)
  1. FORTEO [Suspect]
     Indication: OSTEOPOROSIS
     Dosage: 20 UG, QD
     Route: 058
     Dates: start: 20110318
  2. NEBIVOLOL HCL [Concomitant]
  3. ZOCOR [Concomitant]
  4. CALCIUM CARBONATE [Concomitant]
  5. NEXIUM [Concomitant]
  6. OMESAR [Concomitant]
  7. LERCANIDIPINE [Concomitant]

REACTIONS (8)
  - SPINAL COMPRESSION FRACTURE [None]
  - CONTUSION [None]
  - HEAD INJURY [None]
  - BLOOD SODIUM DECREASED [None]
  - FRACTURED SACRUM [None]
  - PELVIC FRACTURE [None]
  - BUNDLE BRANCH BLOCK LEFT [None]
  - FALL [None]
